FAERS Safety Report 10297426 (Version 2)
Quarter: 2014Q3

REPORT INFORMATION
  Report Type: Spontaneous
  Country: NG (occurrence: NG)
  Receive Date: 20140711
  Receipt Date: 20140915
  Transmission Date: 20150326
  Serious: Yes (Hospitalization)
  Sender: FDA-Public Use
  Company Number: ZA-ASTRAZENECA-2014SE48776

PATIENT
  Age: 40 Year
  Sex: Female

DRUGS (8)
  1. MERONEM [Suspect]
     Active Substance: MEROPENEM
     Indication: BRAIN ABSCESS
     Route: 042
  2. CETIRIZINE [Concomitant]
     Active Substance: CETIRIZINE HYDROCHLORIDE
  3. ANTIBIOTICS [Concomitant]
     Active Substance: UNSPECIFIED INGREDIENT
     Indication: RESPIRATORY TRACT INFECTION
  4. SALBUTAMOL [Concomitant]
     Active Substance: ALBUTEROL
  5. THEOPHYLLINE [Concomitant]
     Active Substance: THEOPHYLLINE
  6. PREDNISOLONE. [Concomitant]
     Active Substance: PREDNISOLONE
     Dosage: 5 OR 10 BUT UP TO 30 MG DAILY
  7. LORATADINE. [Concomitant]
     Active Substance: LORATADINE
  8. SALBUTAMOL [Concomitant]
     Active Substance: ALBUTEROL

REACTIONS (1)
  - Rectal haemorrhage [Recovered/Resolved]
